FAERS Safety Report 14319442 (Version 1)
Quarter: 2017Q4

REPORT INFORMATION
  Report Type: Spontaneous
  Country: CH (occurrence: CH)
  Receive Date: 20171222
  Receipt Date: 20171222
  Transmission Date: 20180321
  Serious: Yes (Hospitalization)
  Sender: FDA-Public Use
  Company Number: CH-BAYER-2017-246518

PATIENT
  Age: 84 Year
  Sex: Male

DRUGS (12)
  1. PHENPROCOUMON [Suspect]
     Active Substance: PHENPROCOUMON
     Indication: ATRIAL FIBRILLATION
     Dosage: 1 DF, QD; RESTART ON 13 DEC 2017;
     Route: 048
     Dates: start: 200509, end: 20171206
  2. VITARUBIN [Concomitant]
     Active Substance: CYANOCOBALAMIN
     Dosage: 1 DF, Q3MON; DOSE NOT CHANGED, NO MORE PRECISE DATA AVAILABLE;
     Route: 030
  3. BELOC ZOK [Concomitant]
     Active Substance: METOPROLOL SUCCINATE
     Dosage: 25 MG, QD; DOSE NOT CHANGED, NO MORE PRECISE DATA AVAILABLE;
     Route: 048
  4. IMAZOL [CLOTRIMAZOLE] [Concomitant]
     Dosage: 1 DF, UNK; DOSE NOT CHANGED, NO MORE PRECISE DATA AVAILABLE;
     Route: 061
  5. PANTOPRAZOLE SODIUM. [Concomitant]
     Active Substance: PANTOPRAZOLE SODIUM
     Dosage: 40 MG, BID; ACTION TAKEN WITH DRUG IS NOT APPLICABLE, NO MORE PRECISE DATA AVAILABLE;
     Route: 048
     Dates: start: 20171207
  6. METFORMIN [Concomitant]
     Active Substance: METFORMIN HYDROCHLORIDE
     Dosage: 500 MG, TID; DOSE NOT CHANGED, NO MORE PRECISE DATA AVAILABLE;
     Route: 048
  7. TRESIBA [Concomitant]
     Active Substance: INSULIN DEGLUDEC
     Dosage: 24 IU, QD; NO MORE PRECISE DATA AVAILABLE;
     Route: 058
  8. CRESTOR [Concomitant]
     Active Substance: ROSUVASTATIN CALCIUM
     Dosage: 10 MG, QD; DOSE NOT CHANGED, NO MORE PRECISE DATA AVAILABLE;
     Route: 048
  9. TOREM [Concomitant]
     Active Substance: TORSEMIDE
     Dosage: 10 MG, BID; DOSE NOT CHANGED, NO MORE PRECISE DATA AVAILABLE;
     Route: 048
  10. ASPIRIN CARDIO 100 MG [Suspect]
     Active Substance: ASPIRIN
     Dosage: 100 MG, QD; NO MORE PRECISE DATA AVAILABLE;
     Route: 048
  11. PANTOPRAZOLE SODIUM. [Concomitant]
     Active Substance: PANTOPRAZOLE SODIUM
     Dosage: 40 MG, QD; DOSE INCREASED, NO MORE PRECISE DATA AVAILABLE;
     Route: 048
     Dates: end: 20171206
  12. LISITRIL [Concomitant]
     Active Substance: LISINOPRIL
     Dosage: 10 MG, QD; DOSE NOT CHANGED, NO MORE PRECISE DATA AVAILABLE;
     Route: 048

REACTIONS (1)
  - Anaemia [Recovering/Resolving]

NARRATIVE: CASE EVENT DATE: 20171206
